FAERS Safety Report 5968240-8 (Version None)
Quarter: 2008Q4

REPORT INFORMATION
  Report Type: 
  Country: None (occurrence: None)
  Receive Date: 20081119
  Receipt Date: 20081113
  Transmission Date: 20090506
  Serious: Yes (Death)
  Sender: FDA-Public Use
  Company Number: 200814202

PATIENT
  Age: 84 Year
  Sex: Female
  Weight: 76 kg

DRUGS (24)
  1. PRIVIGEN [Suspect]
     Indication: CHRONIC LYMPHOCYTIC LEUKAEMIA
     Dosage: IV; IV; 19 G ONE IV; IV
     Route: 042
     Dates: start: 20080611, end: 20080611
  2. PRIVIGEN [Suspect]
     Indication: HYPOGAMMAGLOBULINAEMIA
     Dosage: IV; IV; 19 G ONE IV; IV
     Route: 042
     Dates: start: 20080611, end: 20080611
  3. PRIVIGEN [Suspect]
     Indication: INFECTION PROPHYLAXIS
     Dosage: IV; IV; 19 G ONE IV; IV
     Route: 042
     Dates: start: 20080611, end: 20080611
  4. PRIVIGEN [Suspect]
     Indication: CHRONIC LYMPHOCYTIC LEUKAEMIA
     Dosage: IV; IV; 19 G ONE IV; IV
     Route: 042
     Dates: start: 20080813, end: 20080813
  5. PRIVIGEN [Suspect]
     Indication: HYPOGAMMAGLOBULINAEMIA
     Dosage: IV; IV; 19 G ONE IV; IV
     Route: 042
     Dates: start: 20080813, end: 20080813
  6. PRIVIGEN [Suspect]
     Indication: INFECTION PROPHYLAXIS
     Dosage: IV; IV; 19 G ONE IV; IV
     Route: 042
     Dates: start: 20080813, end: 20080813
  7. PRIVIGEN [Suspect]
     Indication: CHRONIC LYMPHOCYTIC LEUKAEMIA
     Dosage: IV; IV; 19 G ONE IV; IV
     Route: 042
     Dates: start: 20081015, end: 20081015
  8. PRIVIGEN [Suspect]
     Indication: HYPOGAMMAGLOBULINAEMIA
     Dosage: IV; IV; 19 G ONE IV; IV
     Route: 042
     Dates: start: 20081015, end: 20081015
  9. PRIVIGEN [Suspect]
     Indication: INFECTION PROPHYLAXIS
     Dosage: IV; IV; 19 G ONE IV; IV
     Route: 042
     Dates: start: 20081015, end: 20081015
  10. PRIVIGEN [Suspect]
     Indication: CHRONIC LYMPHOCYTIC LEUKAEMIA
     Dosage: IV; IV; 19 G ONE IV; IV
     Route: 042
     Dates: start: 20081015, end: 20081015
  11. PRIVIGEN [Suspect]
     Indication: HYPOGAMMAGLOBULINAEMIA
     Dosage: IV; IV; 19 G ONE IV; IV
     Route: 042
     Dates: start: 20081015, end: 20081015
  12. PRIVIGEN [Suspect]
     Indication: INFECTION PROPHYLAXIS
     Dosage: IV; IV; 19 G ONE IV; IV
     Route: 042
     Dates: start: 20081015, end: 20081015
  13. PRIVIGEN [Suspect]
     Indication: CHRONIC LYMPHOCYTIC LEUKAEMIA
     Dosage: IV
     Route: 042
     Dates: start: 20081015, end: 20081015
  14. PRIVIGEN [Suspect]
     Indication: HYPOGAMMAGLOBULINAEMIA
     Dosage: IV
     Route: 042
     Dates: start: 20081015, end: 20081015
  15. PRIVIGEN [Suspect]
     Indication: INFECTION PROPHYLAXIS
     Dosage: IV
     Route: 042
     Dates: start: 20081015, end: 20081015
  16. TYLENOL (CAPLET) [Concomitant]
  17. BENADRYL [Concomitant]
  18. LEVOTHYROXINE SODIUM [Concomitant]
  19. COZAAR [Concomitant]
  20. GLYBURIDE AND METFORMIN HCL [Concomitant]
  21. METFORMIN HCL [Concomitant]
  22. ASPIRIN [Concomitant]
  23. HYDROCHLOROTHIAZIDE [Concomitant]
  24. FLU SHOT [Concomitant]

REACTIONS (16)
  - BLOOD PRESSURE SYSTOLIC DECREASED [None]
  - BRONCHOSPASM [None]
  - CARDIAC DISORDER [None]
  - CARDIAC MURMUR [None]
  - DYSPNOEA [None]
  - HEADACHE [None]
  - HEART RATE IRREGULAR [None]
  - HYPERHIDROSIS [None]
  - HYPOXIA [None]
  - INFUSION RELATED REACTION [None]
  - MYOCARDIAL INFARCTION [None]
  - NAUSEA [None]
  - OBSTRUCTIVE AIRWAYS DISORDER [None]
  - RESPIRATORY FAILURE [None]
  - TACHYCARDIA [None]
  - WHEEZING [None]
